FAERS Safety Report 16806983 (Version 2)
Quarter: 2019Q4

REPORT INFORMATION
  Report Type: Report from Study
  Country: US (occurrence: US)
  Receive Date: 20190913
  Receipt Date: 20191002
  Transmission Date: 20200122
  Serious: No
  Sender: FDA-Public Use
  Company Number: US-SA-2019SA254550

PATIENT
  Age: 60 Year
  Sex: Male

DRUGS (1)
  1. ALGLUCOSIDASE ALFA [Suspect]
     Active Substance: ALGLUCOSIDASE ALFA
     Indication: GLYCOGEN STORAGE DISEASE TYPE II
     Dosage: DOSE: 1850; FREQUENCY: Q2
     Route: 042
     Dates: start: 20160627

REACTIONS (2)
  - Urticaria [Recovered/Resolved]
  - Incorrect dose administered [Recovered/Resolved]
